FAERS Safety Report 12712887 (Version 2)
Quarter: 2016Q3

REPORT INFORMATION
  Report Type: Spontaneous
  Country: CO (occurrence: CO)
  Receive Date: 20160902
  Receipt Date: 20160914
  Transmission Date: 20161109
  Serious: Yes (Death)
  Sender: FDA-Public Use
  Company Number: CO-MALLINCKRODT-T201603959

PATIENT
  Age: 1 Day
  Sex: Male
  Weight: 3 kg

DRUGS (1)
  1. INOMAX [Suspect]
     Active Substance: NITRIC OXIDE
     Indication: PERSISTENT FOETAL CIRCULATION
     Dosage: UNKNOWN
     Dates: start: 20160808, end: 20160808

REACTIONS (2)
  - Drug administration error [Fatal]
  - Device issue [Fatal]

NARRATIVE: CASE EVENT DATE: 20160808
